FAERS Safety Report 24379275 (Version 3)
Quarter: 2024Q4

REPORT INFORMATION
  Report Type: Report from Study
  Country: MX (occurrence: MX)
  Receive Date: 20240930
  Receipt Date: 20241007
  Transmission Date: 20250114
  Serious: Yes (Death)
  Sender: NOVARTIS
  Company Number: MX-002147023-NVSC2024MX192805

PATIENT
  Age: 20 Year
  Sex: Female
  Weight: 85 kg

DRUGS (2)
  1. CYCLOSPORINE [Suspect]
     Active Substance: CYCLOSPORINE
     Indication: Bone marrow transplant
     Dosage: 100 MILLIGRAM PER MILLILITRE
     Route: 048
     Dates: start: 202310, end: 202310
  2. CYCLOSPORINE [Suspect]
     Active Substance: CYCLOSPORINE
     Indication: Bone marrow transplant
     Dosage: 50 MG
     Route: 048
     Dates: start: 202311

REACTIONS (3)
  - Chronic myeloid leukaemia [Fatal]
  - Vomiting [Fatal]
  - Illness [Fatal]

NARRATIVE: CASE EVENT DATE: 20231001
